FAERS Safety Report 8011603-X (Version None)
Quarter: 2011Q4

REPORT INFORMATION
  Report Type: 
  Country: None (occurrence: None)
  Receive Date: 20111228
  Receipt Date: 20111219
  Transmission Date: 20120403
  Serious: Yes (Death)
  Sender: FDA-Public Use
  Company Number: US-PFIZER INC-2011309519

PATIENT
  Age: 78 Year
  Sex: Female

DRUGS (2)
  1. NIFEDIPINE [Suspect]
     Route: 048
  2. IRBESARTAN + HYDROCHLOROTHIAZIDE [Suspect]
     Route: 048

REACTIONS (1)
  - COMPLETED SUICIDE [None]
